FAERS Safety Report 4403942-6 (Version None)
Quarter: 2004Q3

REPORT INFORMATION
  Report Type: 
  Country: None (occurrence: None)
  Receive Date: 20040719
  Receipt Date: 20040625
  Transmission Date: 20050211
  Serious: Yes (Hospitalization)
  Sender: FDA-Public Use
  Company Number: 2004-BP-05031NB(0)

PATIENT
  Age: 70 Year
  Sex: Male

DRUGS (2)
  1. MICARDIS [Suspect]
     Indication: HYPERTENSION
     Dosage: 40 MG PO
     Route: 048
     Dates: start: 20031001, end: 20040608
  2. CONIEL (BENIDIPINE HYDROCHLORIDE) [Concomitant]

REACTIONS (1)
  - JAUNDICE [None]
